FAERS Safety Report 7412020-3 (Version None)
Quarter: 2011Q2

REPORT INFORMATION
  Report Type: 
  Country: None (occurrence: None)
  Receive Date: 20110404
  Receipt Date: 20110322
  Transmission Date: 20111010
  Serious: Yes (Other)
  Sender: FDA-Public Use
  Company Number: 1000019205

PATIENT
  Age: 75 Year
  Sex: Female
  Weight: 75 kg

DRUGS (7)
  1. ROFLUMILAST (ROFLUMILAST) (TABLETS) [Suspect]
     Indication: CHRONIC OBSTRUCTIVE PULMONARY DISEASE
     Dosage: 500 MCG, ORAL
     Route: 048
     Dates: start: 20110211, end: 20110302
  2. ROFLUMILAST (ROFLUMILAST) (TABLETS) [Suspect]
     Indication: INFECTION
     Dosage: 500 MCG, ORAL
     Route: 048
     Dates: start: 20110211, end: 20110302
  3. METFORMIN (METFORMIN) (850 MILLIGRAM) (METFORMIN) [Concomitant]
  4. APIDRA (INSULIN GLULISINE) (INSULIN GLULISINE) [Concomitant]
  5. SIMVASTATIN (SIMVASTATIN) (20 MILLIGRAM) (SIMVASTATIN) [Concomitant]
  6. EPROSARTAN (EPROSARTAN) (EPROSARTAN) [Concomitant]
  7. HUMINSULIN (HUMAN INSULIN) (HUMAN INSULIN) [Concomitant]

REACTIONS (8)
  - LISTLESS [None]
  - DECREASED APPETITE [None]
  - DIZZINESS [None]
  - VOMITING [None]
  - WEIGHT DECREASED [None]
  - CARDIOVASCULAR INSUFFICIENCY [None]
  - ASTHENIA [None]
  - NAUSEA [None]
